FAERS Safety Report 5140711-6 (Version None)
Quarter: 2006Q4

REPORT INFORMATION
  Report Type: 
  Country: None (occurrence: None)
  Receive Date: 20061025
  Receipt Date: 20061009
  Transmission Date: 20070319
  Serious: No
  Sender: FDA-Public Use
  Company Number: 36669

PATIENT
  Age: 18 Year
  Sex: Female

DRUGS (1)
  1. CHLORAMPHENICOL [Suspect]
     Indication: CONJUNCTIVITIS BACTERIAL
     Dosage: 1 GTT Q2HR
     Route: 047
     Dates: start: 20060920, end: 20060923

REACTIONS (3)
  - ABNORMAL SENSATION IN EYE [None]
  - EYE PAIN [None]
  - VISION BLURRED [None]
